FAERS Safety Report 9092801 (Version 1)
Quarter: 2013Q1

REPORT INFORMATION
  Report Type: Report from Study
  Country: US (occurrence: US)
  Receive Date: 20130131
  Receipt Date: 20130131
  Transmission Date: 20140127
  Serious: No
  Sender: FDA-Public Use
  Company Number: US-ABBOTT-12P-163-0999667-00

PATIENT
  Age: 22 Year
  Sex: Female

DRUGS (4)
  1. HUMIRA [Suspect]
     Indication: COLITIS ULCERATIVE
     Dosage: LOADING DOSE
     Route: 058
  2. LIALDA [Concomitant]
     Indication: COLITIS ULCERATIVE
     Dosage: IN THE AM
     Route: 048
  3. AZATHIOPRINE [Concomitant]
     Indication: COLITIS ULCERATIVE
     Route: 048
  4. ROWASA ENEMA [Concomitant]
     Indication: COLITIS ULCERATIVE
     Dosage: AT BEDTIME
     Route: 054

REACTIONS (2)
  - Syncope [Unknown]
  - Urinary tract infection [Recovering/Resolving]
